FAERS Safety Report 16530964 (Version 3)
Quarter: 2024Q3

REPORT INFORMATION
  Report Type: Spontaneous
  Country: CA (occurrence: CA)
  Receive Date: 20190705
  Receipt Date: 20240708
  Transmission Date: 20241017
  Serious: Yes (Other)
  Sender: PFIZER
  Company Number: CA-PFIZER INC-2019019743

PATIENT
  Age: 57 Year
  Sex: Female

DRUGS (7)
  1. XELJANZ [Suspect]
     Active Substance: TOFACITINIB CITRATE
     Indication: Rheumatoid arthritis
     Dosage: 5 MG, 2X/DAY
     Route: 048
     Dates: start: 20190101
  2. SULFASALAZINE [Concomitant]
     Active Substance: SULFASALAZINE
     Dosage: 1 G, 2X/DAY
     Route: 048
     Dates: start: 20180301
  3. PREDNISONE [Concomitant]
     Active Substance: PREDNISONE
     Dosage: UNK
  4. ACTONEL [Concomitant]
     Active Substance: RISEDRONATE SODIUM
     Dosage: 35 MG, WEEKLY
     Route: 048
  5. ADVIL [Concomitant]
     Active Substance: IBUPROFEN\IBUPROFEN SODIUM
  6. INDAPAMIDE\PERINDOPRIL ARGININE [Concomitant]
     Active Substance: INDAPAMIDE\PERINDOPRIL ARGININE
     Dosage: UNK UNK, DAILY (STRENGTH: 8/2.5MG)
     Route: 048
  7. CANNABIDIOL\HERBALS [Concomitant]
     Active Substance: CANNABIDIOL\HERBALS
     Dosage: UNK
     Dates: start: 201905

REACTIONS (15)
  - Neoplasm recurrence [Not Recovered/Not Resolved]
  - Herpes ophthalmic [Unknown]
  - Therapeutic product effect incomplete [Not Recovered/Not Resolved]
  - Oedema peripheral [Unknown]
  - Nodule [Unknown]
  - Joint lock [Unknown]
  - Peripheral swelling [Recovered/Resolved]
  - Sciatica [Recovering/Resolving]
  - Cholelithiasis [Unknown]
  - Blood uric acid increased [Unknown]
  - Gout [Unknown]
  - Gouty tophus [Unknown]
  - Haemoglobin decreased [Unknown]
  - Blood creatinine increased [Unknown]
  - C-reactive protein increased [Unknown]

NARRATIVE: CASE EVENT DATE: 20190101
